FAERS Safety Report 14685134 (Version 1)
Quarter: 2018Q1

REPORT INFORMATION
  Report Type: Spontaneous
  Country: US (occurrence: US)
  Receive Date: 20180327
  Receipt Date: 20180327
  Transmission Date: 20180509
  Serious: No
  Sender: FDA-Public Use
  Company Number: US-SEBELA IRELAND LIMITED-2017SEB00262

PATIENT
  Sex: Female

DRUGS (1)
  1. NAFTIN [Suspect]
     Active Substance: NAFTIFINE HYDROCHLORIDE
     Indication: TINEA INFECTION
     Route: 061

REACTIONS (2)
  - Application site erythema [Unknown]
  - Application site dryness [Unknown]

NARRATIVE: CASE EVENT DATE: 2017
